FAERS Safety Report 18107710 (Version 5)
Quarter: 2020Q3

REPORT INFORMATION
  Report Type: Spontaneous
  Country: US (occurrence: US)
  Receive Date: 20200803
  Receipt Date: 20200923
  Transmission Date: 20201103
  Serious: No
  Sender: FDA-Public Use
  Company Number: US-JNJFOC-20200747824

PATIENT
  Age: 51 Year
  Sex: Male
  Weight: 97.61 kg

DRUGS (2)
  1. SIMPONI [Suspect]
     Active Substance: GOLIMUMAB
     Indication: ANKYLOSING SPONDYLITIS
     Dosage: 50 MG/0.50 ML
     Route: 058
  2. TRIAMTERENE. [Concomitant]
     Active Substance: TRIAMTERENE
     Indication: VERTIGO
     Route: 065
     Dates: start: 2007

REACTIONS (3)
  - Underdose [Unknown]
  - Accidental exposure to product [Unknown]
  - Device issue [Unknown]

NARRATIVE: CASE EVENT DATE: 20200729
